FAERS Safety Report 20788238 (Version 2)
Quarter: 2022Q3

REPORT INFORMATION
  Report Type: Report from Study
  Country: CO (occurrence: CO)
  Receive Date: 20220505
  Receipt Date: 20220930
  Transmission Date: 20221027
  Serious: Yes (Hospitalization, Other)
  Sender: FDA-Public Use
  Company Number: CO-SA-SAC20220502001496

PATIENT
  Age: 20 Year
  Sex: Male

DRUGS (1)
  1. ALEMTUZUMAB [Suspect]
     Active Substance: ALEMTUZUMAB
     Indication: Multiple sclerosis
     Dosage: 12 MG
     Route: 041
     Dates: start: 20220322, end: 20220326

REACTIONS (6)
  - Multiple sclerosis [Not Recovered/Not Resolved]
  - Oedema [Not Recovered/Not Resolved]
  - Haemoptysis [Unknown]
  - Swelling [Not Recovered/Not Resolved]
  - Cough [Recovered/Resolved]
  - Headache [Recovered/Resolved]

NARRATIVE: CASE EVENT DATE: 20220101
